FAERS Safety Report 5745347-1 (Version None)
Quarter: 2008Q2

REPORT INFORMATION
  Report Type: 
  Country: None (occurrence: None)
  Receive Date: 20080521
  Receipt Date: 20080515
  Transmission Date: 20081010
  Serious: Yes (Other)
  Sender: FDA-Public Use
  Company Number: US-MERCK-0803USA00419

PATIENT
  Age: 69 Year
  Sex: Female
  Weight: 58 kg

DRUGS (4)
  1. SINGULAIR [Suspect]
     Route: 048
     Dates: end: 20010401
  2. SEREVENT [Concomitant]
     Route: 065
  3. FLOVENT [Concomitant]
     Route: 065
  4. ALLEGRA D 24 HOUR [Concomitant]
     Route: 065

REACTIONS (2)
  - ALLERGIC GRANULOMATOUS ANGIITIS [None]
  - SWELLING FACE [None]
